FAERS Safety Report 5328427-4 (Version None)
Quarter: 2007Q2

REPORT INFORMATION
  Report Type: 
  Country: None (occurrence: None)
  Receive Date: 20070516
  Receipt Date: 20070516
  Transmission Date: 20071010
  Serious: Yes (Other)
  Sender: FDA-Public Use
  Company Number: None

PATIENT
  Age: 50 Year
  Sex: Male
  Weight: 86.1834 kg

DRUGS (1)
  1. CLONAZEPAM [Suspect]
     Indication: SCHIZOPHRENIA
     Dosage: 0.5 MG ONE PER DAY BUCCAL
     Route: 002
     Dates: start: 20000115, end: 20070515

REACTIONS (1)
  - NEUROGENIC BLADDER [None]
